FAERS Safety Report 9018398 (Version 1)
Quarter: 2013Q1

REPORT INFORMATION
  Report Type: Spontaneous
  Country: NZ (occurrence: NZ)
  Receive Date: 20130118
  Receipt Date: 20130118
  Transmission Date: 20140127
  Serious: Yes (Other)
  Sender: FDA-Public Use
  Company Number: NZ-PFIZER INC-2013015122

PATIENT
  Sex: Male

DRUGS (2)
  1. HYSITE [Suspect]
     Indication: GLAUCOMA
     Dosage: UNK
  2. VOLTAREN [Concomitant]
     Dosage: UNK

REACTIONS (2)
  - Cataract [Unknown]
  - Drug label confusion [Unknown]
